FAERS Safety Report 25876388 (Version 1)
Quarter: 2025Q4

REPORT INFORMATION
  Report Type: Spontaneous
  Country: US (occurrence: US)
  Receive Date: 20251003
  Receipt Date: 20251003
  Transmission Date: 20260117
  Serious: No
  Sender: SANOFI AVENTIS
  Company Number: US-SA-2025SA293946

PATIENT
  Age: 46 Year
  Sex: Female
  Weight: 111.13 kg

DRUGS (1)
  1. DUPIXENT [Suspect]
     Active Substance: DUPILUMAB
     Indication: Eosinophilic oesophagitis
     Dosage: 300 MG, QW
     Route: 058
     Dates: start: 202507, end: 20250904

REACTIONS (3)
  - Eosinophilic oesophagitis [Unknown]
  - Condition aggravated [Unknown]
  - Rebound effect [Unknown]

NARRATIVE: CASE EVENT DATE: 20250901
